FAERS Safety Report 6975006-9 (Version None)
Quarter: 2010Q3

REPORT INFORMATION
  Report Type: 
  Country: None (occurrence: None)
  Receive Date: 20100910
  Receipt Date: 20090122
  Transmission Date: 20110219
  Serious: No
  Sender: FDA-Public Use
  Company Number: US-WYE-H07840309

PATIENT
  Sex: Female
  Weight: 68.55 kg

DRUGS (7)
  1. PRISTIQ [Suspect]
     Indication: DEPRESSION
     Route: 048
     Dates: start: 20081201
  2. ATENOLOL [Concomitant]
  3. VICODIN [Concomitant]
  4. ZETIA [Concomitant]
  5. PREVACID [Concomitant]
  6. SYNTHROID [Concomitant]
  7. PLAVIX [Concomitant]

REACTIONS (3)
  - DECREASED APPETITE [None]
  - INSOMNIA [None]
  - WEIGHT DECREASED [None]
